FAERS Safety Report 21617230 (Version 2)
Quarter: 2023Q1

REPORT INFORMATION
  Report Type: Report from Study
  Country: US (occurrence: US)
  Receive Date: 20221118
  Receipt Date: 20230316
  Transmission Date: 20230418
  Serious: No
  Sender: FDA-Public Use
  Company Number: US-ABBVIE-4171571

PATIENT
  Sex: Male

DRUGS (2)
  1. SKYRIZI [Suspect]
     Active Substance: RISANKIZUMAB-RZAA
     Indication: Psoriasis
     Dosage: 150 MG?WEEK 0, WEEK 4
     Route: 058
     Dates: start: 20220826
  2. SKYRIZI [Suspect]
     Active Substance: RISANKIZUMAB-RZAA
     Route: 058

REACTIONS (6)
  - Rhinorrhoea [Unknown]
  - Arthralgia [Not Recovered/Not Resolved]
  - Therapeutic product effect decreased [Unknown]
  - Influenza [Unknown]
  - Meniscus injury [Unknown]
  - Oropharyngeal pain [Unknown]

NARRATIVE: CASE EVENT DATE: 20220101
